FAERS Safety Report 5656005-6 (Version None)
Quarter: 2008Q1

REPORT INFORMATION
  Report Type: 
  Country: None (occurrence: None)
  Receive Date: 20080307
  Receipt Date: 20080225
  Transmission Date: 20080703
  Serious: Yes (Other)
  Sender: FDA-Public Use
  Company Number: US-PFIZER INC-2008018699

PATIENT
  Sex: Male
  Weight: 114 kg

DRUGS (8)
  1. CHANTIX [Suspect]
     Indication: SMOKING CESSATION THERAPY
  2. ANTIHYPERTENSIVES [Concomitant]
     Indication: HYPERTENSION
  3. TRIGLYCERIDES [Concomitant]
     Indication: BLOOD TRIGLYCERIDES INCREASED
  4. ANTI-DIABETICS [Concomitant]
  5. ALLOPURINOL [Concomitant]
     Indication: GOUT
  6. SIMVASTATIN [Concomitant]
     Indication: BLOOD CHOLESTEROL INCREASED
  7. VITAMINS [Concomitant]
  8. CALCIUM [Concomitant]

REACTIONS (1)
  - CORONARY ARTERY BYPASS [None]
